FAERS Safety Report 4331043-4 (Version None)
Quarter: 2004Q2

REPORT INFORMATION
  Report Type: 
  Country: None (occurrence: None)
  Receive Date: 20040405
  Receipt Date: 20031215
  Transmission Date: 20050107
  Serious: Yes (Hospitalization, Other)
  Sender: FDA-Public Use
  Company Number: 200314768FR

PATIENT
  Age: 71 Year
  Sex: Male
  Weight: 110 kg

DRUGS (8)
  1. TAXOTERE [Suspect]
     Indication: OESOPHAGEAL CARCINOMA
     Dates: start: 20031001, end: 20031101
  2. BETATOP [Suspect]
     Indication: HYPERTENSION
  3. PREVISCAN [Suspect]
     Indication: ATRIAL FIBRILLATION
  4. MOPRAL [Suspect]
     Indication: OESOPHAGITIS
  5. BETA BLOCKING AGENTS [Concomitant]
  6. VIT K ANTAGONISTS [Concomitant]
  7. MOPRAL [Concomitant]
  8. EPOGEN [Concomitant]
     Dates: start: 20031031, end: 20031101

REACTIONS (9)
  - BLOOD CREATININE INCREASED [None]
  - CUTANEOUS VASCULITIS [None]
  - FEBRILE NEUTROPENIA [None]
  - LEUKOCYTOCLASTIC VASCULITIS [None]
  - NECROSIS [None]
  - PERIPHERAL SENSORIMOTOR NEUROPATHY [None]
  - PROTEINURIA [None]
  - RENAL VASCULITIS [None]
  - SKIN ULCER [None]
